FAERS Safety Report 4767491-8 (Version None)
Quarter: 2005Q3

REPORT INFORMATION
  Report Type: 
  Country: None (occurrence: None)
  Receive Date: 20050912
  Receipt Date: 20050828
  Transmission Date: 20060218
  Serious: Yes (Other)
  Sender: FDA-Public Use
  Company Number: 2005120479

PATIENT
  Sex: Female

DRUGS (1)
  1. UNISOM [Suspect]
     Indication: INSOMNIA
     Dosage: 10 SLEEPGELS ONCE, ORAL
     Route: 048
     Dates: start: 20050828, end: 20050828

REACTIONS (2)
  - DYSSTASIA [None]
  - FEELING ABNORMAL [None]
